FAERS Safety Report 19047921 (Version 5)
Quarter: 2021Q4

REPORT INFORMATION
  Report Type: Report from Study
  Country: FR (occurrence: FR)
  Receive Date: 20210323
  Receipt Date: 20211026
  Transmission Date: 20220303
  Serious: Yes (Hospitalization, Other)
  Sender: FDA-Public Use
  Company Number: FR-INCYTE CORPORATION-2021IN002356

PATIENT
  Age: 65 Year
  Sex: Male
  Weight: 66.5 kg

DRUGS (9)
  1. PONATINIB [Suspect]
     Active Substance: PONATINIB
     Indication: Chronic myeloid leukaemia transformation
     Dosage: 15 MILLIGRAM, QD
     Route: 048
     Dates: start: 20200330, end: 20210310
  2. AZACITIDINE [Suspect]
     Active Substance: AZACITIDINE
     Indication: Chronic myeloid leukaemia transformation
     Dosage: UNK
     Route: 058
     Dates: start: 20200330
  3. AZACITIDINE [Suspect]
     Active Substance: AZACITIDINE
     Dosage: 130 MILLIGRAM
     Route: 058
     Dates: start: 20210209, end: 20210215
  4. AZACITIDINE [Suspect]
     Active Substance: AZACITIDINE
     Dosage: 130 MILLIGRAM
     Route: 058
     Dates: start: 20210310
  5. AZACITIDINE [Suspect]
     Active Substance: AZACITIDINE
     Dosage: 75 MILLIGRAM/SQ. METER
     Route: 058
     Dates: start: 20200330, end: 20210215
  6. HYDROCHLOROTHIAZIDE [Concomitant]
     Active Substance: HYDROCHLOROTHIAZIDE
     Indication: Hypertension
     Dosage: 25 MILLIGRAM, MONTHLY
     Route: 065
     Dates: start: 20210302, end: 20210401
  7. Covid-19 vaccine [Concomitant]
     Indication: Product used for unknown indication
     Dosage: UNK
     Route: 065
     Dates: start: 202101, end: 202101
  8. Covid-19 vaccine [Concomitant]
     Dosage: UNK
     Route: 065
     Dates: start: 20210225, end: 20210225
  9. IMATINIB. [Concomitant]
     Active Substance: IMATINIB MESYLATE
     Indication: Chronic myeloid leukaemia
     Dosage: 600 MILLIGRAM
     Route: 048
     Dates: start: 20210403

REACTIONS (2)
  - Renal artery stenosis [Recovered/Resolved]
  - Hypertension [Recovered/Resolved]

NARRATIVE: CASE EVENT DATE: 20210304
